FAERS Safety Report 6045579-1 (Version None)
Quarter: 2009Q1

REPORT INFORMATION
  Report Type: 
  Country: None (occurrence: None)
  Receive Date: 20090121
  Receipt Date: 20090119
  Transmission Date: 20090719
  Serious: Yes (Life-Threatening, Hospitalization)
  Sender: FDA-Public Use
  Company Number: DE-ASTRAZENECA-2009PK00415

PATIENT
  Age: 86 Year
  Sex: Female
  Weight: 70 kg

DRUGS (17)
  1. METOPROLOL TARTRATE [Suspect]
     Indication: HYPERTENSION
     Route: 048
     Dates: end: 20080520
  2. METOPROLOL TARTRATE [Suspect]
     Route: 048
     Dates: start: 20080521
  3. METHIZOL [Suspect]
     Indication: HYPERTHYROIDISM
     Route: 048
  4. ACETYLSALICYLIC ACID SRT [Concomitant]
     Indication: CORONARY ARTERY DISEASE
     Route: 048
  5. PANTOZOL [Concomitant]
     Indication: PROPHYLAXIS AGAINST GASTROINTESTINAL ULCER
     Route: 048
  6. RAMIPRIL [Concomitant]
     Indication: HYPERTENSION
     Route: 048
  7. PIRETANIDE [Concomitant]
     Indication: HYPERTENSION
     Route: 048
  8. PRAVASTATIN [Concomitant]
     Indication: CORONARY ARTERY DISEASE
     Route: 048
  9. PIRACETAM [Concomitant]
     Indication: DEMENTIA
     Route: 048
  10. ARLEVERT [Concomitant]
     Indication: DIZZINESS
     Dosage: 20 MG/40 MG THREE TIMES DAILY
     Route: 048
  11. TORSEMIDE [Concomitant]
     Indication: RENAL IMPAIRMENT
     Route: 048
  12. ACTRAPID PENFILL [Concomitant]
     Indication: TYPE 2 DIABETES MELLITUS
     Route: 058
  13. PROTAPHAN PENFILL [Concomitant]
     Indication: TYPE 2 DIABETES MELLITUS
     Route: 058
  14. CALCIUM D3 ^STADA^ [Concomitant]
     Indication: OSTEOPOROSIS
     Dosage: 600 MG/4 MG TWICE DAILY
     Route: 048
  15. FENTANYL CITRATE [Concomitant]
     Indication: MUSCULOSKELETAL PAIN
     Route: 062
  16. NOVALGIN                                /SCH/ [Concomitant]
     Indication: MUSCULOSKELETAL PAIN
     Route: 048
  17. LACTULOSE [Concomitant]
     Indication: CONSTIPATION
     Route: 048

REACTIONS (2)
  - BRADYCARDIA [None]
  - HYPOTHYROIDISM [None]
